FAERS Safety Report 5770395-5 (Version None)
Quarter: 2008Q2

REPORT INFORMATION
  Report Type: 
  Country: None (occurrence: None)
  Receive Date: 20080613
  Receipt Date: 20080502
  Transmission Date: 20081010
  Serious: No
  Sender: FDA-Public Use
  Company Number: US-ABBOTT-08P-163-0450127-00

PATIENT
  Sex: Female

DRUGS (12)
  1. HUMIRA [Suspect]
     Indication: RHEUMATOID ARTHRITIS
     Route: 058
     Dates: start: 20071101
  2. OESTRANORM [Concomitant]
     Indication: HORMONE REPLACEMENT THERAPY
  3. METHADONE HCL [Concomitant]
     Indication: MIGRAINE
  4. PHENERGAN [Concomitant]
     Indication: MIGRAINE
  5. FUROSEMIDE [Concomitant]
     Indication: DRUG USE FOR UNKNOWN INDICATION
  6. HYDROCHLOROTHIAZIDE [Concomitant]
     Indication: DRUG USE FOR UNKNOWN INDICATION
  7. CLONAZEPAM [Concomitant]
     Indication: CONVULSION
  8. PARAFATE [Concomitant]
     Indication: DRUG USE FOR UNKNOWN INDICATION
  9. ESOMEPRAZOLE MAGNESIUM [Concomitant]
     Indication: DRUG USE FOR UNKNOWN INDICATION
  10. CYCLOBENZAPRINE HCL [Concomitant]
     Indication: DRUG USE FOR UNKNOWN INDICATION
  11. PREDNISONE TAB [Concomitant]
     Indication: DRUG USE FOR UNKNOWN INDICATION
  12. HYDROCODONE [Concomitant]
     Indication: PAIN

REACTIONS (2)
  - BRONCHITIS [None]
  - PNEUMONIA [None]
